FAERS Safety Report 25792771 (Version 3)
Quarter: 2025Q4

REPORT INFORMATION
  Report Type: Spontaneous
  Country: US (occurrence: US)
  Receive Date: 20250911
  Receipt Date: 20251022
  Transmission Date: 20260118
  Serious: Yes (Other)
  Sender: ALEXION PHARMACEUTICALS
  Company Number: US-AstraZeneca-CH-00947097AP

PATIENT
  Sex: Female

DRUGS (1)
  1. NEXIUM [Suspect]
     Active Substance: ESOMEPRAZOLE MAGNESIUM
     Indication: Dyspepsia
     Dosage: 40 MILLIGRAM, QD

REACTIONS (14)
  - Drug ineffective [Unknown]
  - Dyspepsia [Unknown]
  - Cough [Unknown]
  - Off label use [Unknown]
  - Visual impairment [Unknown]
  - Major depression [Unknown]
  - Malaise [Unknown]
  - Product physical issue [Unknown]
  - Renal disorder [Unknown]
  - Thinking abnormal [Unknown]
  - Dizziness [Unknown]
  - Tremor [Unknown]
  - Dysarthria [Unknown]
  - Product dose omission issue [Unknown]
